FAERS Safety Report 4801708-6 (Version None)
Quarter: 2005Q4

REPORT INFORMATION
  Report Type: 
  Country: None (occurrence: None)
  Receive Date: 20051018
  Receipt Date: 20051011
  Transmission Date: 20060501
  Serious: Yes (Death, Hospitalization)
  Sender: FDA-Public Use
  Company Number: US-AMGEN-US153862

PATIENT
  Sex: Female

DRUGS (2)
  1. ARANESP [Suspect]
     Indication: MYELODYSPLASTIC SYNDROME
     Dates: start: 20040501, end: 20050504
  2. BLOOD CELLS, PACKED HUMAN [Concomitant]
     Dates: start: 20050202, end: 20050615

REACTIONS (2)
  - HOSPITALISATION [None]
  - THROMBOCYTOPENIA [None]
